FAERS Safety Report 24982406 (Version 1)
Quarter: 2025Q1

REPORT INFORMATION
  Report Type: Spontaneous
  Country: BE (occurrence: BE)
  Receive Date: 20250218
  Receipt Date: 20250218
  Transmission Date: 20250409
  Serious: Yes (Other)
  Sender: NOVARTIS
  Company Number: BE-002147023-NVSC2025BE026402

PATIENT
  Sex: Female

DRUGS (1)
  1. BEOVU [Suspect]
     Active Substance: BROLUCIZUMAB-DBLL
     Indication: Product used for unknown indication
     Route: 065
     Dates: start: 202109

REACTIONS (2)
  - Eye disorder [Unknown]
  - Disease recurrence [Unknown]

NARRATIVE: CASE EVENT DATE: 20211101
